FAERS Safety Report 6169557-7 (Version None)
Quarter: 2009Q2

REPORT INFORMATION
  Report Type: 
  Country: None (occurrence: None)
  Receive Date: 20090428
  Receipt Date: 20090417
  Transmission Date: 20091009
  Serious: Yes (Other)
  Sender: FDA-Public Use
  Company Number: US-CELGENEUS-163-20785-09042035

PATIENT

DRUGS (6)
  1. THALOMID [Suspect]
     Indication: MULTIPLE MYELOMA
     Route: 048
  2. BORTEZOMIB [Suspect]
     Indication: MULTIPLE MYELOMA
     Route: 065
  3. BORTEZOMIB [Suspect]
     Route: 065
  4. CYCLOPHOSPHAMIDE [Suspect]
     Indication: MULTIPLE MYELOMA
     Route: 051
  5. DEXAMETHASONE [Suspect]
     Indication: MULTIPLE MYELOMA
  6. ASPIRIN [Concomitant]
     Indication: THROMBOSIS PROPHYLAXIS
     Route: 065

REACTIONS (2)
  - DEEP VEIN THROMBOSIS [None]
  - DRUG TOXICITY [None]
